FAERS Safety Report 5713218-2 (Version None)
Quarter: 2008Q2

REPORT INFORMATION
  Report Type: 
  Country: None (occurrence: None)
  Receive Date: 20080422
  Receipt Date: 19950818
  Transmission Date: 20081010
  Serious: Yes (Death, Hospitalization)
  Sender: FDA-Public Use
  Company Number: US-ROCHE-75084

PATIENT
  Age: 47 Year
  Sex: Male

DRUGS (8)
  1. GANCICLOVIR [Suspect]
     Route: 048
     Dates: start: 19941103, end: 19950729
  2. GANCICLOVIR [Suspect]
     Route: 048
     Dates: start: 19940505, end: 19941102
  3. SULFAMETHOXAZOLE [Concomitant]
  4. TRIMETHOPRIM [Concomitant]
  5. CLARITHROMYCIN [Concomitant]
  6. FLUCONAZOLE [Concomitant]
  7. TRAZODONE HCL [Concomitant]
  8. TESTOSTERONE [Concomitant]

REACTIONS (1)
  - PULMONARY EMBOLISM [None]
